FAERS Safety Report 5020671-9 (Version None)
Quarter: 2006Q2

REPORT INFORMATION
  Report Type: 
  Country: None (occurrence: None)
  Receive Date: 20060602
  Receipt Date: 20060517
  Transmission Date: 20061013
  Serious: Yes (Life-Threatening, Hospitalization)
  Sender: FDA-Public Use
  Company Number: US200605003899

PATIENT
  Age: 57 Year
  Sex: Female

DRUGS (3)
  1. HUMULIN R [Suspect]
     Indication: DIABETES MELLITUS
     Dosage: AS NEEDED
  2. HUMULIN 70/30 [Suspect]
     Indication: DIABETES MELLITUS
     Dosage: 70 U, EACH MORNING  ; 70 U, EACH EVENING
  3. GLUCOPHAGE [Concomitant]

REACTIONS (6)
  - BLOOD GLUCOSE DECREASED [None]
  - DIABETES MELLITUS INADEQUATE CONTROL [None]
  - DIABETES MELLITUS INSULIN-DEPENDENT [None]
  - DIABETIC COMA [None]
  - DIABETIC KETOACIDOSIS [None]
  - RESPIRATORY ARREST [None]
